FAERS Safety Report 6567583-7 (Version None)
Quarter: 2010Q1

REPORT INFORMATION
  Report Type: 
  Country: None (occurrence: None)
  Receive Date: 20100202
  Receipt Date: 20100122
  Transmission Date: 20100710
  Serious: Yes (Hospitalization)
  Sender: FDA-Public Use
  Company Number: PHHY2010FR03794

PATIENT
  Sex: Female

DRUGS (5)
  1. EXELON [Suspect]
     Indication: COGNITIVE DISORDER
     Dosage: 4.5 MG, BID
     Route: 048
     Dates: start: 20070601
  2. SIMVASTATIN [Concomitant]
     Indication: HYPERCHOLESTEROLAEMIA
     Dosage: 1 DF, QD
     Route: 048
  3. NIFEDIPINE [Concomitant]
     Indication: HYPERTENSION
     Dosage: 1 DF, QD
     Route: 048
  4. DEROXAT [Concomitant]
     Indication: DEPRESSION
     Dosage: 1 DF, QD
     Route: 048
  5. FUMAFER [Concomitant]
     Indication: MICROCYTIC ANAEMIA
     Route: 048

REACTIONS (8)
  - BLOOD PRESSURE INCREASED [None]
  - DISORIENTATION [None]
  - HEART RATE DECREASED [None]
  - INCOHERENT [None]
  - LOSS OF CONSCIOUSNESS [None]
  - MALAISE [None]
  - MEMORY IMPAIRMENT [None]
  - RESPIRATORY RATE INCREASED [None]
